FAERS Safety Report 6289213-4 (Version None)
Quarter: 2009Q3

REPORT INFORMATION
  Report Type: 
  Country: None (occurrence: None)
  Receive Date: 20090728
  Receipt Date: 20090721
  Transmission Date: 20100115
  Serious: Yes (Hospitalization)
  Sender: FDA-Public Use
  Company Number: WAES 0904CHN00048

PATIENT
  Age: 58 Year
  Sex: Male

DRUGS (8)
  1. TAB LAROPIPRANT (+) NIACIN [Suspect]
     Indication: HIGH DENSITY LIPOPROTEIN DECREASED
     Dosage: 1 GM/DAILY; PO; 2 GM/DAILY, PO
     Route: 048
     Dates: start: 20071009, end: 20080409
  2. TAB LAROPIPRANT (+) NIACIN [Suspect]
     Indication: HIGH DENSITY LIPOPROTEIN DECREASED
     Dosage: 1 GM/DAILY; PO; 2 GM/DAILY, PO
     Route: 048
     Dates: start: 20080423, end: 20081009
  3. TAB LAROPIPRANT (+) NIACIN [Suspect]
     Indication: HIGH DENSITY LIPOPROTEIN DECREASED
     Dosage: 1 GM/DAILY; PO; 2 GM/DAILY, PO
     Route: 048
     Dates: start: 20081029, end: 20090720
  4. TAB LAROPIPRANT (+) NIACIN [Suspect]
     Indication: HIGH DENSITY LIPOPROTEIN DECREASED
     Dosage: 1 GM/DAILY; PO; 2 GM/DAILY, PO
     Route: 048
     Dates: start: 20070809
  5. SIMVASTATIN [Suspect]
     Indication: HYPERCHOLESTEROLAEMIA
     Dosage: 40 MG/DAILY; PO
     Route: 048
     Dates: start: 20070712, end: 20090420
  6. ACARBOSE [Concomitant]
  7. CLOPIDOGREL BISULFATE [Concomitant]
  8. INSULIN [Concomitant]

REACTIONS (16)
  - ACTIVATED PARTIAL THROMBOPLASTIN TIME PROLONGED [None]
  - ASCITES [None]
  - BLOOD ALBUMIN INCREASED [None]
  - BLOOD CREATININE INCREASED [None]
  - CHOLELITHIASIS [None]
  - COAGULATION TIME PROLONGED [None]
  - EPISTAXIS [None]
  - GALLBLADDER OEDEMA [None]
  - HAEMOGLOBIN DECREASED [None]
  - HEPATIC CIRRHOSIS [None]
  - HEPATIC FAILURE [None]
  - HEPATITIS [None]
  - HYPOPROTEINAEMIA [None]
  - MALAISE [None]
  - NAUSEA [None]
  - PLATELET COUNT DECREASED [None]
